FAERS Safety Report 7730730-5 (Version None)
Quarter: 2011Q3

REPORT INFORMATION
  Report Type: 
  Country: None (occurrence: None)
  Receive Date: 20110906
  Receipt Date: 20110826
  Transmission Date: 20111222
  Serious: Yes (Life-Threatening, Hospitalization)
  Sender: FDA-Public Use
  Company Number: NL-GLAXOSMITHKLINE-B0730547A

PATIENT
  Sex: Male

DRUGS (9)
  1. CHLORAMBUCIL [Suspect]
     Indication: CHRONIC LYMPHOCYTIC LEUKAEMIA
     Dosage: 60MG TWO TIMES PER WEEK
     Route: 065
     Dates: start: 20110314, end: 20110425
  2. FLUDARABINE PHOSPHATE [Concomitant]
  3. ALLOPURINOL [Concomitant]
     Indication: CHRONIC LYMPHOCYTIC LEUKAEMIA
     Route: 048
     Dates: start: 20110311, end: 20110509
  4. AMLODIPINE [Concomitant]
     Indication: HYPERTENSION
     Route: 048
     Dates: start: 20110506
  5. CYCLOPHOSPHAMIDE [Concomitant]
  6. SILDENAFIL CITRATE [Concomitant]
     Indication: ERECTILE DYSFUNCTION
     Route: 048
     Dates: start: 20051101
  7. METFORMIN HCL [Concomitant]
     Indication: DIABETES MELLITUS
     Dates: start: 20090213
  8. NIFEDIPINE [Concomitant]
     Indication: HYPERTENSION
     Dates: start: 20080620
  9. ALLOPURINOL [Concomitant]
     Indication: PROPHYLAXIS
     Route: 048
     Dates: start: 20110714, end: 20110724

REACTIONS (4)
  - ASPERGILLOSIS [None]
  - DISEASE PROGRESSION [None]
  - FEBRILE NEUTROPENIA [None]
  - THROMBOCYTOPENIA [None]
